FAERS Safety Report 20148042 (Version 1)
Quarter: 2021Q4

REPORT INFORMATION
  Report Type: Spontaneous
  Country: CN (occurrence: CN)
  Receive Date: 20211204
  Receipt Date: 20211204
  Transmission Date: 20220303
  Serious: Yes (Other)
  Sender: FDA-Public Use
  Company Number: CN-CHIESI-2021CHF06031

PATIENT

DRUGS (2)
  1. PORACTANT ALFA [Suspect]
     Active Substance: PORACTANT ALFA
     Indication: Neonatal respiratory distress syndrome
     Dosage: 200 MILLIGRAM/KILOGRAM, (1X)
     Route: 038
  2. PORACTANT ALFA [Suspect]
     Active Substance: PORACTANT ALFA
     Dosage: 100 MILLIGRAM/KILOGRAM, (1X)
     Route: 038

REACTIONS (1)
  - Pneumonia [Unknown]
